FAERS Safety Report 12710610 (Version 1)
Quarter: 2016Q3

REPORT INFORMATION
  Report Type: Spontaneous
  Country: PL (occurrence: PL)
  Receive Date: 20160902
  Receipt Date: 20160902
  Transmission Date: 20161109
  Serious: Yes (Death, Hospitalization, Other)
  Sender: FDA-Public Use
  Company Number: PL-ROCHE-1822009

PATIENT
  Age: 66 Year
  Sex: Female
  Weight: 62 kg

DRUGS (6)
  1. CAPECITABINE. [Suspect]
     Active Substance: CAPECITABINE
     Indication: METASTATIC GASTRIC CANCER
     Dosage: DAYS 1-14 OF A 21-DAY CYCLE, ?18/MAY/2016, LAST DOSE
     Route: 048
     Dates: start: 20160420, end: 20160518
  2. PRIMACOR (POLAND) [Concomitant]
  3. ROSUVASTATIN. [Concomitant]
     Active Substance: ROSUVASTATIN
  4. CISPLATIN. [Suspect]
     Active Substance: CISPLATIN
     Indication: METASTATIC GASTRIC CANCER
     Dosage: DAY 1 OF A 21-DAY CYCLE?11/MAY/2016, LAST DOSE
     Route: 042
     Dates: start: 20160420, end: 20160511
  5. INDIX [Concomitant]
     Active Substance: INDAPAMIDE
     Route: 065
     Dates: start: 2010
  6. MILRINONE [Concomitant]
     Active Substance: MILRINONE

REACTIONS (11)
  - Mucosal inflammation [Unknown]
  - Vomiting [Fatal]
  - Clostridium difficile infection [Fatal]
  - Neutropenia [Fatal]
  - Septic shock [Fatal]
  - Sepsis [Unknown]
  - Dehydration [Fatal]
  - Vomiting [Not Recovered/Not Resolved]
  - Cardiac failure [Fatal]
  - Diarrhoea [Fatal]
  - Palmar-plantar erythrodysaesthesia syndrome [Unknown]

NARRATIVE: CASE EVENT DATE: 201605
